FAERS Safety Report 7560547-6 (Version None)
Quarter: 2011Q2

REPORT INFORMATION
  Report Type: 
  Country: None (occurrence: None)
  Receive Date: 20110621
  Receipt Date: 20101005
  Transmission Date: 20111010
  Serious: No
  Sender: FDA-Public Use
  Company Number: US-ASTRAZENECA-2010SE47088

PATIENT
  Age: 68 Year
  Sex: Female

DRUGS (8)
  1. ASPIRIN [Concomitant]
  2. ENTOCORT EC [Suspect]
     Route: 048
     Dates: start: 20100101
  3. SYNTHROID [Concomitant]
  4. SIMVASTATIN [Concomitant]
  5. ACIPHEX [Concomitant]
  6. RAMIPRIL [Concomitant]
  7. ENTOCORT EC [Suspect]
     Indication: COLITIS COLLAGENOUS
     Route: 048
     Dates: start: 20091001, end: 20100701
  8. HUMALOG [Concomitant]

REACTIONS (2)
  - CONDITION AGGRAVATED [None]
  - DRUG DOSE OMISSION [None]
